FAERS Safety Report 5074085-6 (Version None)
Quarter: 2006Q3

REPORT INFORMATION
  Report Type: 
  Country: None (occurrence: None)
  Receive Date: 20060808
  Receipt Date: 20060307
  Transmission Date: 20061208
  Serious: No
  Sender: FDA-Public Use
  Company Number: US-AMGEN-KDL171814

PATIENT
  Sex: Female
  Weight: 70.4 kg

DRUGS (5)
  1. PROCRIT [Suspect]
     Indication: RENAL FAILURE CHRONIC
     Dates: start: 20050101
  2. MYCOPHENOLATE MOFETIL [Concomitant]
  3. PROGRAF [Concomitant]
  4. VALGANCICLOVIR HCL [Concomitant]
  5. BACTRIM [Concomitant]

REACTIONS (1)
  - THERAPEUTIC RESPONSE DELAYED [None]
